FAERS Safety Report 9849368 (Version 1)
Quarter: 2014Q1

REPORT INFORMATION
  Report Type: Spontaneous
  Country: US (occurrence: US)
  Receive Date: 20140128
  Receipt Date: 20140128
  Transmission Date: 20141002
  Serious: Yes (Other)
  Sender: FDA-Public Use
  Company Number: US-PURDUE-USA-2014-0110599

PATIENT
  Age: 89 Year
  Sex: Female

DRUGS (1)
  1. BUTRANS [Suspect]
     Indication: ARTHRALGIA
     Dosage: 20 MCG/HR, WEEKLY
     Route: 062
     Dates: start: 201308

REACTIONS (2)
  - Vaginal haemorrhage [Not Recovered/Not Resolved]
  - Wrong technique in drug usage process [Unknown]
